FAERS Safety Report 16405507 (Version 1)
Quarter: 2019Q2

REPORT INFORMATION
  Report Type: Spontaneous
  Country: US (occurrence: US)
  Receive Date: 20190607
  Receipt Date: 20190607
  Transmission Date: 20190711
  Serious: No
  Sender: FDA-Public Use
  Company Number: US-BAYER-2019-110801

PATIENT
  Age: 54 Year
  Sex: Female

DRUGS (7)
  1. ESTRADIOL. [Suspect]
     Active Substance: ESTRADIOL
     Dosage: UNK
     Route: 062
  2. CALCIUM [Concomitant]
     Active Substance: CALCIUM
  3. ANTIHISTAMINE ALLERGY RELIEF [Concomitant]
  4. GLUCOSAMINE [Concomitant]
     Active Substance: GLUCOSAMINE
  5. ESTRADIOL TRANSDERMAL SYSTEM [Suspect]
     Active Substance: ESTRADIOL
     Dosage: UNK
     Route: 062
     Dates: start: 2008
  6. PROBIOTIC [BIFIDOBACTERIUM LACTIS] [Concomitant]
  7. FISH OIL [Concomitant]
     Active Substance: FISH OIL

REACTIONS (5)
  - Device use issue [None]
  - Sciatica [None]
  - Sciatica [None]
  - Night sweats [None]
  - Therapeutic product effect decreased [None]

NARRATIVE: CASE EVENT DATE: 201905
